FAERS Safety Report 5747980-X (Version None)
Quarter: 2008Q2

REPORT INFORMATION
  Report Type: 
  Country: None (occurrence: None)
  Receive Date: 20080521
  Receipt Date: 20080505
  Transmission Date: 20081010
  Serious: Yes (Death, Hospitalization)
  Sender: FDA-Public Use
  Company Number: 2008AL003418

PATIENT
  Age: 77 Year
  Sex: Male

DRUGS (5)
  1. DIGOXIN [Suspect]
     Indication: CARDIAC DISORDER
     Dosage: DAILY, PO
     Route: 048
  2. CARDIZEM [Concomitant]
  3. ATENOLOL [Concomitant]
  4. INSULIN [Concomitant]
  5. ASPIRIN [Concomitant]

REACTIONS (3)
  - CARDIAC DISORDER [None]
  - LOSS OF CONSCIOUSNESS [None]
  - SURGERY [None]
